FAERS Safety Report 22298844 (Version 4)
Quarter: 2023Q2

REPORT INFORMATION
  Report Type: Spontaneous
  Country: US (occurrence: US)
  Receive Date: 20230509
  Receipt Date: 20230620
  Transmission Date: 20230722
  Serious: Yes (Other)
  Sender: FDA-Public Use
  Company Number: US-PFIZER INC-202300176530

PATIENT
  Age: 74 Year
  Sex: Female
  Weight: 56.25 kg

DRUGS (2)
  1. ESTRING [Suspect]
     Active Substance: ESTRADIOL
     Indication: Vulvovaginal dryness
     Dosage: 2 MG, EVERY 3 MONTHS
  2. ESTRING [Suspect]
     Active Substance: ESTRADIOL
     Indication: Atrophic vulvovaginitis

REACTIONS (1)
  - Urinary tract infection enterococcal [Recovered/Resolved]

NARRATIVE: CASE EVENT DATE: 20230425
